FAERS Safety Report 6020832-6 (Version None)
Quarter: 2008Q4

REPORT INFORMATION
  Report Type: 
  Country: None (occurrence: None)
  Receive Date: 20081229
  Receipt Date: 20081218
  Transmission Date: 20090506
  Serious: Yes (Death)
  Sender: FDA-Public Use
  Company Number: US-JNJFOC-20081205806

PATIENT
  Age: 50 Year
  Sex: Female

DRUGS (5)
  1. OXYCODONE AND ACETAMINOPHEN [Suspect]
     Indication: SUICIDE ATTEMPT
  2. HYDROMORPHONE [Suspect]
     Indication: SUICIDE ATTEMPT
  3. MORPHINE [Suspect]
     Indication: SUICIDE ATTEMPT
  4. DIAZEPAM [Suspect]
     Indication: SUICIDE ATTEMPT
  5. GABAPENTIN [Suspect]
     Indication: SUICIDE ATTEMPT

REACTIONS (2)
  - COMPLETED SUICIDE [None]
  - DRUG TOXICITY [None]
